FAERS Safety Report 6501473-0 (Version None)
Quarter: 2009Q4

REPORT INFORMATION
  Report Type: 
  Country: None (occurrence: None)
  Receive Date: 20091216
  Receipt Date: 20091209
  Transmission Date: 20100525
  Serious: Yes (Hospitalization, Other)
  Sender: FDA-Public Use
  Company Number: JP-BRISTOL-MYERS SQUIBB COMPANY-14890768

PATIENT
  Age: 63 Year
  Sex: Female
  Weight: 46 kg

DRUGS (13)
  1. TAXOL [Suspect]
     Indication: BREAST CANCER
     Route: 041
     Dates: start: 20071015
  2. AVASTIN [Suspect]
     Indication: BREAST CANCER
     Route: 041
     Dates: start: 20071015, end: 20090805
  3. DEXART [Suspect]
     Indication: BREAST CANCER
     Route: 041
     Dates: start: 20071015
  4. ZANTAC [Suspect]
     Indication: BREAST CANCER
     Route: 041
     Dates: start: 20071015
  5. GRANISETRON HCL [Suspect]
     Indication: BREAST CANCER
     Route: 041
     Dates: start: 20081015
  6. DIPHENHYDRAMINE HCL [Suspect]
     Indication: BREAST CANCER
     Route: 048
     Dates: start: 20081015
  7. AMLODIPINE BESYLATE [Concomitant]
     Indication: HYPERTENSION
     Route: 048
     Dates: start: 20071226
  8. BROTIZOLAM [Concomitant]
     Indication: INSOMNIA
     Route: 048
  9. MAGNESIUM OXIDE [Concomitant]
     Indication: CONSTIPATION
     Route: 048
     Dates: start: 20080122
  10. ATORVASTATIN CALCIUM [Concomitant]
     Indication: HYPERLIPIDAEMIA
     Route: 048
     Dates: start: 20090427
  11. TRICHLORMETHIAZIDE [Concomitant]
     Indication: HYPERTENSION
     Route: 048
     Dates: start: 20091005
  12. VALSARTAN [Concomitant]
     Indication: HYPERTENSION
     Route: 048
     Dates: start: 20090908
  13. KETOPROFEN [Concomitant]
     Indication: ARTHRITIS
     Dosage: ADHESIVE SKIN PATCH
     Route: 061

REACTIONS (1)
  - OSTEITIS [None]
